FAERS Safety Report 23191459 (Version 2)
Quarter: 2023Q4

REPORT INFORMATION
  Report Type: Other
  Country: US (occurrence: None)
  Receive Date: 20231116
  Receipt Date: 20231124
  Transmission Date: 20240110
  Serious: Yes (Hospitalization)
  Sender: FDA-Public Use
  Company Number: US-ROCHE-3456405

PATIENT
  Age: 1 Year
  Sex: Female
  Weight: 5.15 kg

DRUGS (1)
  1. EVRYSDI [Suspect]
     Active Substance: RISDIPLAM
     Indication: Spinal muscular atrophy
     Dosage: 1.4 ML
     Route: 048

REACTIONS (3)
  - Pyrexia [Recovered/Resolved]
  - Dehydration [Recovered/Resolved]
  - Bacterial infection [Unknown]

NARRATIVE: CASE EVENT DATE: 20231108
